FAERS Safety Report 10013230 (Version 1)
Quarter: 2014Q1

REPORT INFORMATION
  Report Type: Spontaneous
  Country: CA (occurrence: CA)
  Receive Date: 20140314
  Receipt Date: 20140314
  Transmission Date: 20141002
  Serious: Yes (Death, Hospitalization, Other)
  Sender: FDA-Public Use
  Company Number: CA-BAXTER-2014BAX011822

PATIENT
  Age: 68 Year
  Sex: Male

DRUGS (2)
  1. DIANEAL PD4 SOLUTION WITH 1.5% DEXTROSE AND 2.5 MEQ/L CALCIUM [Suspect]
     Indication: RENAL FAILURE
     Route: 033
     Dates: start: 2011, end: 20140227
  2. EXTRANEAL [Suspect]
     Indication: RENAL FAILURE
     Route: 033
     Dates: start: 2011, end: 20140227

REACTIONS (5)
  - Multimorbidity [Fatal]
  - Pneumonia [Not Recovered/Not Resolved]
  - Pancreatitis [Not Recovered/Not Resolved]
  - Pancreatic mass [Not Recovered/Not Resolved]
  - Skin discolouration [Not Recovered/Not Resolved]
